FAERS Safety Report 4333867-6 (Version None)
Quarter: 2004Q2

REPORT INFORMATION
  Report Type: 
  Country: None (occurrence: None)
  Receive Date: 20040407
  Receipt Date: 20031224
  Transmission Date: 20050107
  Serious: Yes (Hospitalization)
  Sender: FDA-Public Use
  Company Number: FR-BRISTOL-MYERS SQUIBB COMPANY-12464954

PATIENT
  Age: 42 Year
  Sex: Male
  Weight: 64 kg

DRUGS (5)
  1. VIDEX [Suspect]
     Indication: HIV INFECTION
     Route: 048
     Dates: start: 20030808
  2. REYATAZ [Suspect]
     Indication: HIV INFECTION
     Route: 048
     Dates: start: 20030829
  3. EPIVIR [Suspect]
     Indication: HIV INFECTION
     Route: 048
     Dates: start: 20020101
  4. IMOVANE [Suspect]
     Route: 048
     Dates: start: 20030501
  5. LAROXYL [Suspect]
     Route: 048
     Dates: start: 20030501

REACTIONS (1)
  - ASTHMA [None]
